FAERS Safety Report 5018059-X (Version None)
Quarter: 2006Q2

REPORT INFORMATION
  Report Type: 
  Country: None (occurrence: None)
  Receive Date: 20060530
  Receipt Date: 20050113
  Transmission Date: 20061013
  Serious: Yes (Other)
  Sender: FDA-Public Use
  Company Number: 2005013859

PATIENT
  Weight: 125 kg

DRUGS (3)
  1. LYRICA [Suspect]
     Indication: ILL-DEFINED DISORDER
  2. CLOPIDOGREL [Concomitant]
  3. RAMIPRIL [Concomitant]

REACTIONS (2)
  - CONSTIPATION [None]
  - IRRITABILITY [None]
